FAERS Safety Report 23685384 (Version 3)
Quarter: 2024Q4

REPORT INFORMATION
  Report Type: Report from Study
  Country: US (occurrence: US)
  Receive Date: 20240329
  Receipt Date: 20241209
  Transmission Date: 20250115
  Serious: Yes (Other)
  Sender: ABBVIE
  Company Number: US-ABBVIE-5694762

PATIENT
  Age: 32 Year
  Sex: Male

DRUGS (1)
  1. SKYRIZI [Suspect]
     Active Substance: RISANKIZUMAB-RZAA
     Indication: Psoriasis
     Route: 058
     Dates: start: 20230818

REACTIONS (3)
  - Cholecystectomy [Recovered/Resolved]
  - Gallbladder disorder [Recovering/Resolving]
  - Bowel movement irregularity [Unknown]

NARRATIVE: CASE EVENT DATE: 20240301
